FAERS Safety Report 4952030-9 (Version None)
Quarter: 2006Q1

REPORT INFORMATION
  Report Type: 
  Country: None (occurrence: None)
  Receive Date: 20060320
  Receipt Date: 20060309
  Transmission Date: 20060701
  Serious: Yes (Life-Threatening, Hospitalization)
  Sender: FDA-Public Use
  Company Number: 2006034823

PATIENT
  Age: 40 Year
  Sex: Male

DRUGS (4)
  1. ZOLOFT [Suspect]
     Indication: MAJOR DEPRESSION
     Dosage: ORAL
     Route: 048
     Dates: start: 20020701
  2. EDRONAX (REBOXETINE) [Suspect]
     Indication: MAJOR DEPRESSION
     Dosage: ORAL
     Route: 048
     Dates: start: 20020729
  3. ZELDOX (CAPSULES) (ZIPRASIDONE) [Suspect]
     Indication: MAJOR DEPRESSION
     Dosage: ORAL
     Route: 048
     Dates: start: 20020709
  4. LORAZEPAM [Suspect]
     Indication: ILL-DEFINED DISORDER
     Dates: start: 20020706

REACTIONS (3)
  - CARDIO-RESPIRATORY ARREST [None]
  - INJURY ASPHYXIATION [None]
  - SUICIDE ATTEMPT [None]
